FAERS Safety Report 8523280-X (Version None)
Quarter: 2012Q3

REPORT INFORMATION
  Report Type: 
  Country: None (occurrence: None)
  Receive Date: 20120706
  Receipt Date: 20120626
  Transmission Date: 20120928
  Serious: Yes (Other)
  Sender: FDA-Public Use
  Company Number: 2012155287

PATIENT
  Age: 67 Year
  Sex: Female

DRUGS (8)
  1. PANTOPRAZOLE SODIUM [Concomitant]
  2. CALCIMAGON-D3 (CALCIUM CARBONATE, COLECALCIFEROL) [Concomitant]
  3. METHOTREXATE [Suspect]
     Indication: PSORIATIC ARTHROPATHY
     Dosage: 1 DF, 1X/DAY, ORAL
     Route: 048
     Dates: start: 20050801, end: 20120404
  4. FRAGMIN [Suspect]
     Indication: PROPHYLAXIS
     Dosage: 5000 IU, 1X/DAY, SUBCUTANEOUS
     Route: 058
     Dates: start: 20120301, end: 20120404
  5. IBUPROFEN [Suspect]
     Indication: BACK PAIN
     Dosage: 1 DF PER DAY, ORAL
     Route: 048
     Dates: start: 20120320, end: 20120404
  6. ESCITALOPRAM OXALATE [Suspect]
     Dosage: 10 MG, 1X/DAY, ORAL
     Route: 048
  7. PREDNISONE TAB [Suspect]
     Indication: PSORIATIC ARTHROPATHY
     Dosage: 10 MG, 1X/DAY, ORAL
     Route: 048
     Dates: start: 20050801
  8. RAMIPRIL [Concomitant]

REACTIONS (1)
  - PNEUMONIA BACTERIAL [None]
